FAERS Safety Report 20523355 (Version 2)
Quarter: 2022Q2

REPORT INFORMATION
  Report Type: Other
  Country: US (occurrence: None)
  Receive Date: 20220227
  Receipt Date: 20220429
  Transmission Date: 20220720
  Serious: Yes (Hospitalization)
  Sender: FDA-Public Use
  Company Number: US-ROCHE-3027175

PATIENT
  Age: 72 Year
  Sex: Male
  Weight: 143.01 kg

DRUGS (14)
  1. OCREVUS [Suspect]
     Active Substance: OCRELIZUMAB
     Indication: Secondary progressive multiple sclerosis
     Route: 042
     Dates: start: 2019
  2. OCREVUS [Suspect]
     Active Substance: OCRELIZUMAB
     Route: 042
     Dates: start: 202002
  3. LISINOPRIL [Concomitant]
     Active Substance: LISINOPRIL
     Indication: Hypertension
     Dosage: ONE IN MORNING AND ONE AT NIGHT
     Route: 048
     Dates: start: 2010
  4. LISINOPRIL [Concomitant]
     Active Substance: LISINOPRIL
     Dates: start: 2012
  5. SIMVASTATIN [Concomitant]
     Active Substance: SIMVASTATIN
     Indication: Blood cholesterol increased
     Dosage: AT NIGHT
     Route: 048
     Dates: start: 2010
  6. HYDROCHLOROTHIAZIDE [Concomitant]
     Active Substance: HYDROCHLOROTHIAZIDE
     Indication: Hypertension
     Dosage: 20/12.5MG (1 TWICE A DAY)
     Route: 048
  7. ASPIRIN [Concomitant]
     Active Substance: ASPIRIN
     Route: 048
  8. VITAMIN D3 [Concomitant]
     Active Substance: CHOLECALCIFEROL
     Route: 048
  9. DOCUSATE CALCIUM [Concomitant]
     Active Substance: DOCUSATE CALCIUM
     Dosage: PRN
     Route: 048
  10. DOXAZOSIN [Concomitant]
     Active Substance: DOXAZOSIN MESYLATE
     Route: 048
  11. LUNESTA [Concomitant]
     Active Substance: ESZOPICLONE
     Route: 048
  12. GABAPENTIN [Concomitant]
     Active Substance: GABAPENTIN
     Route: 048
  13. VITAMIN B COMPLEX [Concomitant]
     Active Substance: CYANOCOBALAMIN\DEXPANTHENOL\NIACINAMIDE\PYRIDOXINE HYDROCHLORIDE\RIBOFLAVIN 5^-PHOSPHATE SODIUM\THIA
     Route: 048
  14. OZEMPIC [Concomitant]
     Active Substance: SEMAGLUTIDE
     Route: 058

REACTIONS (2)
  - COVID-19 pneumonia [Not Recovered/Not Resolved]
  - Balance disorder [Not Recovered/Not Resolved]

NARRATIVE: CASE EVENT DATE: 20220112
